FAERS Safety Report 21336665 (Version 1)
Quarter: 2022Q3

REPORT INFORMATION
  Report Type: Spontaneous
  Country: US (occurrence: None)
  Receive Date: 20220914
  Receipt Date: 20220914
  Transmission Date: 20221027
  Serious: Yes (Life-Threatening, Hospitalization, Disabling, Other)
  Sender: FDA-Public Use
  Company Number: None

PATIENT
  Age: 35 Year
  Sex: Female
  Weight: 65.25 kg

DRUGS (10)
  1. NIRMATRELVIR\RITONAVIR [Suspect]
     Active Substance: NIRMATRELVIR\RITONAVIR
     Indication: COVID-19
     Dates: start: 20220903, end: 20220908
  2. TRAZODONE [Concomitant]
     Active Substance: TRAZODONE HYDROCHLORIDE
  3. TEMAZEPAM [Concomitant]
     Active Substance: TEMAZEPAM
  4. ZOLPIDEM [Concomitant]
     Active Substance: ZOLPIDEM TARTRATE
  5. VENLAFAXINE [Concomitant]
     Active Substance: VENLAFAXINE HYDROCHLORIDE
  6. VITAMIN D3 [Concomitant]
     Active Substance: CHOLECALCIFEROL
  7. Magnesium biglycinate [Concomitant]
  8. Hair skin and nails gummies [Concomitant]
  9. Prenatal Adult Gummy w/o iron [Concomitant]
  10. Chew Glucose Vitamin C [Concomitant]

REACTIONS (4)
  - Taste disorder [None]
  - Nausea [None]
  - Diarrhoea [None]
  - Tachycardia [None]

NARRATIVE: CASE EVENT DATE: 20220903
